FAERS Safety Report 7453662 (Version 2)
Quarter: 2012Q4

REPORT INFORMATION
  Report Type: Report from Study
  Country: US (occurrence: US)
  Receive Date: 20100706
  Receipt Date: 20120912
  Transmission Date: 20130627
  Serious: Yes (Hospitalization)
  Sender: FDA-Public Use
  Company Number: US-BRISTOL-MYERS SQUIBB COMPANY-15175763

PATIENT
  Age: 60 Year
  Sex: Male
  Weight: 45 kg

DRUGS (3)
  1. ERBITUX [Suspect]
     Indication: NON-SMALL CELL LUNG CANCER
     Dosage: 24mg infusion of loading dose on 01Apr10,Courses:4
     Dates: start: 20100401, end: 20100401
  2. TAXOL [Suspect]
     Indication: NON-SMALL CELL LUNG CANCER
     Dosage: Courses:4
     Dates: start: 20100415, end: 20100510
  3. CARBOPLATIN [Suspect]
     Indication: NON-SMALL CELL LUNG CANCER
     Dosage: Courses:4
     Dates: start: 20100415, end: 20100510

REACTIONS (4)
  - Fatigue [Recovered/Resolved with Sequelae]
  - Dysphagia [Recovered/Resolved with Sequelae]
  - Pneumonia [Unknown]
  - Hypotension [Unknown]
